FAERS Safety Report 25876445 (Version 1)
Quarter: 2025Q4

REPORT INFORMATION
  Report Type: Spontaneous
  Country: US (occurrence: US)
  Receive Date: 20251003
  Receipt Date: 20251003
  Transmission Date: 20260118
  Serious: No
  Sender: ACCORD
  Company Number: US-Coherus Biosciences, Inc.-2024-COH-US000275

PATIENT
  Age: 85 Year
  Sex: Male

DRUGS (2)
  1. UDENYCA [Suspect]
     Active Substance: PEGFILGRASTIM-CBQV
     Indication: Prophylaxis
     Dosage: 6 MG/0.6 ML
     Route: 058
     Dates: start: 20240328
  2. NEULASTA [Concomitant]
     Active Substance: PEGFILGRASTIM

REACTIONS (3)
  - Device malfunction [Unknown]
  - No adverse event [Unknown]
  - Device malfunction [Unknown]

NARRATIVE: CASE EVENT DATE: 20240419
